FAERS Safety Report 6155838-X (Version None)
Quarter: 2009Q2

REPORT INFORMATION
  Report Type: 
  Country: None (occurrence: None)
  Receive Date: 20090415
  Receipt Date: 20090414
  Transmission Date: 20091009
  Serious: Yes (Death)
  Sender: FDA-Public Use
  Company Number: US-KINGPHARMUSA00001-K200900165

PATIENT

DRUGS (1)
  1. THROMBIN NOS [Suspect]
     Dosage: UNK
     Dates: start: 20081101, end: 20081101

REACTIONS (2)
  - ANTI FACTOR V ANTIBODY POSITIVE [None]
  - DEATH [None]
